FAERS Safety Report 7123586-5 (Version None)
Quarter: 2010Q4

REPORT INFORMATION
  Report Type: 
  Country: None (occurrence: None)
  Receive Date: 20101125
  Receipt Date: 20101122
  Transmission Date: 20110411
  Serious: Yes (Other)
  Sender: FDA-Public Use
  Company Number: US-SANOFI-AVENTIS-2010SA070991

PATIENT
  Age: 74 Year
  Sex: Male
  Weight: 69.54 kg

DRUGS (8)
  1. ELOXATIN [Suspect]
     Route: 041
     Dates: start: 20101109, end: 20101109
  2. XELODA [Suspect]
     Dosage: THREE TABLETS IN THE MORNING AND THREE TABLETS IN THE EVENING
     Route: 048
     Dates: start: 20101110, end: 20101116
  3. WARFARIN [Concomitant]
  4. OXYCODONE HCL [Concomitant]
  5. LOMOTIL [Concomitant]
  6. TAMSULOSIN HYDROCHLORIDE [Concomitant]
  7. BENAZEPRIL [Concomitant]
  8. CITALOPRAM HYDROBROMIDE [Concomitant]

REACTIONS (2)
  - DECREASED APPETITE [None]
  - TUMOUR MARKER INCREASED [None]
